FAERS Safety Report 7448704-0 (Version None)
Quarter: 2011Q2

REPORT INFORMATION
  Report Type: 
  Country: None (occurrence: None)
  Receive Date: 20110429
  Receipt Date: 20100708
  Transmission Date: 20111010
  Serious: No
  Sender: FDA-Public Use
  Company Number: US-ASTRAZENECA-2010SE31789

PATIENT
  Age: 59 Year
  Sex: Female

DRUGS (4)
  1. AVALIDE [Concomitant]
  2. NEXIUM [Suspect]
     Indication: GASTROOESOPHAGEAL REFLUX DISEASE
     Route: 048
     Dates: end: 20100615
  3. CLOPIDOGREL [Interacting]
     Indication: CEREBROVASCULAR ACCIDENT
     Route: 048
     Dates: start: 20100603
  4. SIMVASTATIN [Interacting]
     Indication: BLOOD CHOLESTEROL INCREASED
     Route: 065
     Dates: end: 20100614

REACTIONS (6)
  - HEADACHE [None]
  - DRUG INTERACTION [None]
  - MYALGIA [None]
  - NAUSEA [None]
  - BURNING SENSATION [None]
  - FATIGUE [None]
